FAERS Safety Report 18162470 (Version 2)
Quarter: 2020Q3

REPORT INFORMATION
  Report Type: Report from Study
  Country: US (occurrence: US)
  Receive Date: 20200818
  Receipt Date: 20200909
  Transmission Date: 20201103
  Serious: Yes (Death)
  Sender: FDA-Public Use
  Company Number: US-ADAMAS PHARMA, LLC-2020ADA01867

PATIENT
  Age: 66 Year
  Sex: Male

DRUGS (3)
  1. GOCOVRI [Suspect]
     Active Substance: AMANTADINE
     Indication: DYSKINESIA
     Dosage: 137 MG, 1X/DAY AT BEDTIME
     Route: 048
     Dates: start: 20200625, end: 20200701
  2. UNSPECIFIED LEVODOPA?BASED THERAPY [Concomitant]
     Active Substance: LEVODOPA
  3. GOCOVRI [Suspect]
     Active Substance: AMANTADINE
     Dosage: 274 MG, 1X/DAY AT BEDTIME
     Route: 048
     Dates: start: 20200702, end: 202007

REACTIONS (1)
  - Death [Fatal]

NARRATIVE: CASE EVENT DATE: 20200716
